FAERS Safety Report 15490454 (Version 1)
Quarter: 2018Q4

REPORT INFORMATION
  Report Type: Spontaneous
  Country: FR (occurrence: FR)
  Receive Date: 20181011
  Receipt Date: 20181011
  Transmission Date: 20190205
  Serious: Yes (Congenital Anomaly)
  Sender: FDA-Public Use
  Company Number: PHHY2018FR120572

PATIENT
  Sex: Female
  Weight: 3.67 kg

DRUGS (1)
  1. ZOPHREN [Suspect]
     Active Substance: ONDANSETRON
     Indication: FOETAL EXPOSURE DURING PREGNANCY
     Dosage: MATERNAL DOSE:1 ?G/L, QD
     Route: 064
     Dates: start: 201705, end: 201711

REACTIONS (1)
  - Haemangioma [Not Recovered/Not Resolved]

NARRATIVE: CASE EVENT DATE: 20180202
